FAERS Safety Report 4392258-2 (Version None)
Quarter: 2004Q3

REPORT INFORMATION
  Report Type: 
  Country: None (occurrence: None)
  Receive Date: 20040702
  Receipt Date: 20040219
  Transmission Date: 20050211
  Serious: Yes (Other)
  Sender: FDA-Public Use
  Company Number: 2004UW02952

PATIENT
  Age: 68 Year
  Sex: Female
  Weight: 124.2856 kg

DRUGS (4)
  1. CRESTOR [Suspect]
     Indication: BLOOD CHOLESTEROL INCREASED
     Dosage: 10 MG PO
     Route: 048
     Dates: start: 20031201
  2. OXYBUTYNIN [Concomitant]
  3. NAPROXEN [Concomitant]
  4. OMEPRAZOLE [Concomitant]

REACTIONS (2)
  - ALOPECIA [None]
  - DRY MOUTH [None]
